FAERS Safety Report 17766377 (Version 1)
Quarter: 2020Q2

REPORT INFORMATION
  Report Type: Spontaneous
  Country: US (occurrence: US)
  Receive Date: 20200511
  Receipt Date: 20200511
  Transmission Date: 20200714
  Serious: Yes (Death)
  Sender: FDA-Public Use
  Company Number: None

PATIENT
  Age: 25 Year
  Sex: Male
  Weight: 67.5 kg

DRUGS (2)
  1. KRATOM [Suspect]
     Active Substance: HERBALS\MITRAGYNINE
     Indication: DRUG WITHDRAWAL SYNDROME
     Dates: start: 20150101, end: 20200508
  2. LEXIPRO [Concomitant]
     Dates: start: 20140101, end: 20200508

REACTIONS (2)
  - Seizure [None]
  - Cardiac arrest [None]

NARRATIVE: CASE EVENT DATE: 20200508
